FAERS Safety Report 5932810-3 (Version None)
Quarter: 2008Q4

REPORT INFORMATION
  Report Type: 
  Country: None (occurrence: None)
  Receive Date: 20081028
  Receipt Date: 20081024
  Transmission Date: 20090506
  Serious: Yes (Other)
  Sender: FDA-Public Use
  Company Number: D0059165A

PATIENT
  Age: 71 Year
  Sex: Male

DRUGS (2)
  1. DARAPRIM [Suspect]
     Dosage: 25MG UNKNOWN
     Route: 048
     Dates: start: 20080101
  2. MULTIPLE MEDICATIONS [Concomitant]
     Route: 065

REACTIONS (1)
  - BLINDNESS [None]
